FAERS Safety Report 5813753-2 (Version None)
Quarter: 2008Q3

REPORT INFORMATION
  Report Type: 
  Country: None (occurrence: None)
  Receive Date: 20080717
  Receipt Date: 20080708
  Transmission Date: 20090109
  Serious: Yes (Hospitalization)
  Sender: FDA-Public Use
  Company Number: PHHY2008DE13659

PATIENT

DRUGS (3)
  1. GLEEVEC [Suspect]
     Indication: CHRONIC MYELOID LEUKAEMIA
     Dosage: UNK
     Route: 048
  2. ZOVIRAX [Concomitant]
  3. FORTECORTIN [Concomitant]

REACTIONS (3)
  - BRAIN OEDEMA [None]
  - CONVULSION [None]
  - ENCEPHALITIS [None]
